FAERS Safety Report 16564503 (Version 1)
Quarter: 2019Q3

REPORT INFORMATION
  Report Type: Spontaneous
  Country: US (occurrence: US)
  Receive Date: 20190530
  Receipt Date: 20190530
  Transmission Date: 20191004
  Serious: No
  Sender: FDA-Public Use
  Company Number: None

PATIENT
  Sex: Female

DRUGS (1)
  1. MYCOPHENOLATE ORAL SUSP 200MG/ML ASCEND LABORATORIES, LLC A SUBSIDARY OF ALKEM LABORATOIES LTD [Suspect]
     Active Substance: MYCOPHENOLIC ACID
     Indication: RENAL TRANSPLANT
     Dates: start: 20171114

REACTIONS (4)
  - Pyrexia [None]
  - Chills [None]
  - Nausea [None]
  - Vomiting [None]
